FAERS Safety Report 8783132 (Version 2)
Quarter: 2012Q4

REPORT INFORMATION
  Report Type: Report from Study
  Country: JP (occurrence: JP)
  Receive Date: 20120913
  Receipt Date: 20121025
  Transmission Date: 20130627
  Serious: Yes (Hospitalization)
  Sender: FDA-Public Use
  Company Number: JP-VERTEX PHARMACEUTICAL INC.-2012-020779

PATIENT
  Age: 64 Year
  Sex: Female

DRUGS (7)
  1. VX-950 [Suspect]
     Indication: HEPATITIS C
     Dosage: 1500 mg, qd
     Route: 048
     Dates: start: 20120705, end: 20120726
  2. PEGINTERFERON ALFA-2B [Suspect]
     Indication: HEPATITIS C
     Dosage: 1.5 ?g/kg, UNK
     Route: 058
     Dates: start: 20120705, end: 20120723
  3. RIBAVIRIN [Concomitant]
     Dosage: 800 mg, qd
     Route: 048
     Dates: end: 20120726
  4. ACINON [Concomitant]
     Dosage: 300 mg, qd
     Route: 048
     Dates: start: 20120705, end: 20120726
  5. TALION                             /01587402/ [Concomitant]
     Dosage: 20 mg, qd
     Route: 048
     Dates: start: 20120705, end: 20120726
  6. PREDONINE                          /00016201/ [Concomitant]
     Dosage: 15 mg, qd
     Route: 048
     Dates: start: 20120705, end: 20120726
  7. ZYLORIC [Concomitant]
     Dosage: 200 mg, qd
     Route: 048
     Dates: start: 20120711, end: 20120726

REACTIONS (1)
  - Psychiatric symptom [Unknown]
